FAERS Safety Report 5848960-6 (Version None)
Quarter: 2008Q3

REPORT INFORMATION
  Report Type: 
  Country: None (occurrence: None)
  Receive Date: 20080819
  Receipt Date: 20080812
  Transmission Date: 20090109
  Serious: Yes (Death, Hospitalization, Other)
  Sender: FDA-Public Use
  Company Number: PHBS2008HN01942

PATIENT
  Age: 24 Year
  Sex: Female

DRUGS (2)
  1. GLEEVEC [Suspect]
     Indication: CHRONIC MYELOID LEUKAEMIA
     Dosage: 400 MG, UNK
     Route: 048
  2. GLEEVEC [Suspect]
     Dosage: 600 MG, UNK

REACTIONS (6)
  - ANAEMIA [None]
  - DEATH [None]
  - DRUG EXPOSURE DURING PREGNANCY [None]
  - LEUKOCYTOSIS [None]
  - PREMATURE LABOUR [None]
  - SPLENOMEGALY [None]
